FAERS Safety Report 16853749 (Version 1)
Quarter: 2019Q4

REPORT INFORMATION
  Report Type: Spontaneous
  Country: US (occurrence: US)
  Receive Date: 20190925
  Receipt Date: 20190925
  Transmission Date: 20200122
  Serious: Yes (Hospitalization)
  Sender: FDA-Public Use
  Company Number: None

PATIENT
  Sex: Male

DRUGS (2)
  1. GABAPENTIN I DON^T HAVE BOTTLE [Suspect]
     Active Substance: GABAPENTIN
     Indication: PAIN
  2. GABAPENTIN I DON^T HAVE BOTTLE [Suspect]
     Active Substance: GABAPENTIN
     Indication: SLEEP DISORDER

REACTIONS (8)
  - Obsessive-compulsive disorder [None]
  - Anxiety [None]
  - Intentional self-injury [None]
  - Mood altered [None]
  - Sleep disorder [None]
  - Suicidal ideation [None]
  - Skin laceration [None]
  - Depression [None]

NARRATIVE: CASE EVENT DATE: 20190922
